FAERS Safety Report 5983737-2 (Version None)
Quarter: 2008Q4

REPORT INFORMATION
  Report Type: 
  Country: None (occurrence: None)
  Receive Date: 20081208
  Receipt Date: 20071115
  Transmission Date: 20090506
  Serious: Yes (Hospitalization)
  Sender: FDA-Public Use
  Company Number: US-AMGEN-STX250759

PATIENT
  Sex: Male

DRUGS (10)
  1. ENBREL [Suspect]
     Indication: RHEUMATOID ARTHRITIS
     Route: 058
     Dates: start: 20070830, end: 20071019
  2. FOLIC ACID [Concomitant]
  3. NORVASC [Concomitant]
  4. HYDROCHLOROTHIAZIDE [Concomitant]
  5. K-DUR [Concomitant]
  6. ZETIA [Concomitant]
  7. FOSAMAX [Concomitant]
  8. CALTRATE 600 [Concomitant]
  9. CENTRUM SILVER [Concomitant]
  10. PREDNISONE TAB [Concomitant]
     Dates: start: 20070901

REACTIONS (2)
  - ARTHRALGIA [None]
  - PULMONARY EMBOLISM [None]
